FAERS Safety Report 21574908 (Version 1)
Quarter: 2022Q4

REPORT INFORMATION
  Report Type: Spontaneous
  Country: US (occurrence: US)
  Receive Date: 20221110
  Receipt Date: 20221110
  Transmission Date: 20230113
  Serious: Yes (Congenital Anomaly)
  Sender: FDA-Public Use
  Company Number: US-SPECGX-T202202278

PATIENT

DRUGS (2)
  1. OXYCODONE [Suspect]
     Active Substance: OXYCODONE
     Indication: Product used for unknown indication
     Dosage: UNK
     Route: 064
  2. MORPHINE [Suspect]
     Active Substance: MORPHINE
     Indication: Product used for unknown indication
     Dosage: UNK
     Route: 064

REACTIONS (11)
  - Cleft palate [Unknown]
  - Otospondylomegaepiphyseal dysplasia [Unknown]
  - Exomphalos [Unknown]
  - Congenital inguinal hernia [Unknown]
  - Patent ductus arteriosus [Unknown]
  - Plagiocephaly [Unknown]
  - Haemangioma congenital [Unknown]
  - Short stature [Unknown]
  - Congenital nipple anomaly [Unknown]
  - Developmental delay [Unknown]
  - Foetal exposure during pregnancy [Unknown]
